FAERS Safety Report 23631799 (Version 1)
Quarter: 2024Q1

REPORT INFORMATION
  Report Type: Spontaneous
  Country: US (occurrence: US)
  Receive Date: 20240314
  Receipt Date: 20240314
  Transmission Date: 20240410
  Serious: Yes (Other)
  Sender: FDA-Public Use
  Company Number: US-TEVA-VS-3142630

PATIENT
  Age: 72 Year
  Sex: Female

DRUGS (1)
  1. NUVIGIL [Suspect]
     Active Substance: ARMODAFINIL
     Indication: Narcolepsy
     Route: 065

REACTIONS (3)
  - Paralysis [Unknown]
  - Hallucination, visual [Unknown]
  - Screaming [Unknown]
